FAERS Safety Report 23805429 (Version 1)
Quarter: 2024Q2

REPORT INFORMATION
  Report Type: Spontaneous
  Country: IT (occurrence: IT)
  Receive Date: 20240502
  Receipt Date: 20240502
  Transmission Date: 20240716
  Serious: Yes (Other)
  Sender: FDA-Public Use
  Company Number: None

PATIENT
  Age: 51 Year
  Sex: Female
  Weight: 61 kg

DRUGS (7)
  1. PACLITAXEL [Suspect]
     Active Substance: PACLITAXEL
     Indication: Breast cancer
     Dosage: PACLITAXEL TEVA, 6TH CYCLE/15TH DAY PACLITAXEL TEVA* 50ML 6MG/ML; ADMINISTERED DOSE: 120 MG I.V. ...
     Route: 042
     Dates: start: 20230608
  2. GRANISETRON [Concomitant]
     Active Substance: GRANISETRON
     Indication: Chemotherapy side effect prophylaxis
     Dosage: GRANISETRON (PA) ADMINISTERED 3 MG ONCE A WEEK FOR CHEMOTHERAPY: WEEKLY PACLITAXEL PROTOCOL
     Route: 042
     Dates: start: 20230608
  3. ESOMEPRAZOLE [Concomitant]
     Active Substance: ESOMEPRAZOLE
     Indication: Gastrooesophageal reflux disease
     Dosage: LUCEN* 20 MG TABLET (NO TABLET NUMBER IS SPECIFIED IN THE PACKAGE) - 1 TABLET AT 8.00 AM
     Route: 048
     Dates: start: 2023
  4. DEXAMETHASONE [Concomitant]
     Active Substance: DEXAMETHASONE
     Indication: Chemotherapy side effect prophylaxis
     Dosage: DEXAMETHASONE (PA) ADMINISTERED 8 MG - 1 TIME PER WEEK FOR CHEMOTHERAPY: WEEKLY PACLITAXEL PROTOCOL
     Route: 042
     Dates: start: 20230608
  5. METOCLOPRAMIDE [Concomitant]
     Active Substance: METOCLOPRAMIDE
     Indication: Nausea
     Dosage: METOCLOPRAMIDE (PA) ADMINISTERED 10 MG ONCE A WEEK FOR CHEMOTHERAPY: WEEKLY PACLITAXEL PROTOCOL
     Route: 042
     Dates: start: 20230608
  6. IBUPROFEN [Concomitant]
     Active Substance: IBUPROFEN
     Indication: Fibromyalgia
     Dosage: BRUFEN*30CPR RIV 600MG - MAX 2 CAPS/DAY AS NEEDED ON A FULL STOMACH
     Route: 048
     Dates: start: 2023
  7. BISOPROLOL [Concomitant]
     Active Substance: BISOPROLOL\BISOPROLOL FUMARATE
     Indication: Hypertension
     Dosage: SEQUACOR*28CPR RIV 2.5MG - 1CP/DAY
     Route: 048
     Dates: start: 2023

REACTIONS (6)
  - Neuropathy peripheral [Not Recovered/Not Resolved]
  - Asthenia [Not Recovered/Not Resolved]
  - Onychomycosis [Not Recovered/Not Resolved]
  - Paraesthesia [Not Recovered/Not Resolved]
  - Phlebitis [Not Recovered/Not Resolved]
  - Onycholysis [Not Recovered/Not Resolved]

NARRATIVE: CASE EVENT DATE: 20230804
